FAERS Safety Report 13169868 (Version 4)
Quarter: 2020Q1

REPORT INFORMATION
  Report Type: Spontaneous
  Country: US (occurrence: US)
  Receive Date: 20170131
  Receipt Date: 20200122
  Transmission Date: 20200409
  Serious: Yes (Other)
  Sender: FDA-Public Use
  Company Number: US-ABBVIE-16K-163-1550950-00

PATIENT
  Sex: Female

DRUGS (4)
  1. MINOCYCLINE [Suspect]
     Active Substance: MINOCYCLINE HYDROCHLORIDE
     Indication: PRODUCT USED FOR UNKNOWN INDICATION
     Route: 065
  2. HUMIRA [Suspect]
     Active Substance: ADALIMUMAB
     Indication: HIDRADENITIS
     Route: 058
     Dates: start: 201510, end: 201601
  3. HUMIRA [Suspect]
     Active Substance: ADALIMUMAB
     Route: 058
     Dates: start: 2016
  4. COLCHICINE. [Concomitant]
     Active Substance: COLCHICINE
     Indication: PRODUCT USED FOR UNKNOWN INDICATION

REACTIONS (27)
  - Hidradenitis [Not Recovered/Not Resolved]
  - Impaired healing [Unknown]
  - Pain [Unknown]
  - Allergy to synthetic fabric [Unknown]
  - Depression [Unknown]
  - Anxiety [Unknown]
  - Injection site pain [Unknown]
  - Drug ineffective [Unknown]
  - Polycystic ovaries [Unknown]
  - Hypersomnia [Unknown]
  - Exposure during pregnancy [Unknown]
  - Itching scar [Unknown]
  - Staphylococcal skin infection [Unknown]
  - Vulvectomy [Unknown]
  - Scar pain [Unknown]
  - Incision site pain [Unknown]
  - Influenza like illness [Unknown]
  - Caesarean section [Unknown]
  - Hidradenitis [Unknown]
  - Therapeutic product effect incomplete [Unknown]
  - Plantar fasciitis [Unknown]
  - Attention deficit/hyperactivity disorder [Unknown]
  - Hysterectomy [Unknown]
  - Hidradenitis [Recovered/Resolved]
  - Anxiety [Unknown]
  - Drug hypersensitivity [Unknown]
  - Wound infection staphylococcal [Unknown]

NARRATIVE: CASE EVENT DATE: 2015
